FAERS Safety Report 6498798-4 (Version None)
Quarter: 2009Q4

REPORT INFORMATION
  Report Type: 
  Country: None (occurrence: None)
  Receive Date: 20091215
  Receipt Date: 20091208
  Transmission Date: 20100525
  Serious: Yes (Hospitalization, Other)
  Sender: FDA-Public Use
  Company Number: CHPA2009US23233

PATIENT
  Age: 21 Year
  Sex: Female
  Weight: 40.816 kg

DRUGS (2)
  1. GAS-X EXTSTR CHEW TABS PEPPERMINT CREME (NCH) [Suspect]
     Indication: ABDOMINAL DISTENSION
     Dosage: 750 MG, IN A DAY
     Route: 048
     Dates: start: 20090901, end: 20091124
  2. GAS-X EXTSTR CHEW TABS PEPPERMINT CREME (NCH) [Suspect]
     Indication: FLATULENCE

REACTIONS (3)
  - NEPHROLITHIASIS [None]
  - OVERDOSE [None]
  - URETERAL STENT INSERTION [None]
